FAERS Safety Report 9252197 (Version 1)
Quarter: 2013Q1

REPORT INFORMATION
  Report Type: Spontaneous
  Country: US (occurrence: None)
  Receive Date: 20130305
  Receipt Date: 20130305
  Transmission Date: 20140127
  Serious: Yes (Other)
  Sender: FDA-Public Use
  Company Number: 163-21880-12083394

PATIENT
  Age: 70 Year
  Sex: Male
  Weight: 102.06 kg

DRUGS (9)
  1. REVLIMID [Suspect]
     Indication: PLASMA CELL MYELOMA
     Dosage: 21 IN 28 D
     Route: 048
     Dates: start: 20120608
  2. ACYCLOVIR [Suspect]
     Indication: PRODUCT USED FOR UNKNOWN INDICATION
  3. VALACYCLOVIR(VALACICLOVIR HYDROCHLORIDE)(UNKNOWN) [Concomitant]
  4. ASPIRIN(ACETYLSALICYLIC ACID)(UNKNOWN) [Concomitant]
  5. DEXAMETHASONE(DEXAMETHASONE)(UNKNOWN) [Concomitant]
  6. MS CONTIN(MORPHINE SULFATE)(UNKNOWN) [Concomitant]
  7. OMEPRAZOLE(OMEPRAZOLE)(UNKNOWN) [Concomitant]
  8. STOOL SOFTENER(DOCUSATE SODIUM) (UNKNOWN) [Concomitant]
  9. VITAMIN B-6(PYRIDOXINE HYDROCHLORIDE)(UNKNOWN) [Concomitant]

REACTIONS (1)
  - Rash [None]
